FAERS Safety Report 8236965-X (Version None)
Quarter: 2012Q1

REPORT INFORMATION
  Report Type: 
  Country: None (occurrence: None)
  Receive Date: 20120327
  Receipt Date: 20120313
  Transmission Date: 20120608
  Serious: Yes (Congenital Anomaly, Other)
  Sender: FDA-Public Use
  Company Number: GB-RANBAXY-2009RR-23356

PATIENT
  Age: 12 Week
  Sex: Male

DRUGS (7)
  1. CODEINE [Suspect]
     Indication: PRODUCT USED FOR UNKNOWN INDICATION
     Dosage: 30 MG, PRN
     Route: 064
  2. AMOXICILLIN [Suspect]
     Indication: PRODUCT USED FOR UNKNOWN INDICATION
     Dosage: 250 MG, TID
     Route: 064
     Dates: start: 20080707, end: 20080714
  3. EFFEXOR [Suspect]
     Indication: BIPOLAR DISORDER
     Dosage: 150 MG, UNK
     Route: 064
     Dates: start: 20050624
  4. LITHIUM CARBONATE [Suspect]
     Indication: BIPOLAR DISORDER
     Dosage: 1200 MG, UNK
     Route: 064
     Dates: start: 20050101
  5. REBOXETINE [Suspect]
     Indication: BIPOLAR DISORDER
     Dosage: 4 MG, UNK
     Route: 064
     Dates: start: 20050101, end: 20080529
  6. QUETIAPINE [Suspect]
     Indication: BIPOLAR DISORDER
     Dosage: 100 MG, UNK
     Route: 064
     Dates: start: 20080421, end: 20080616
  7. FERROUS SULFATE TAB [Suspect]
     Indication: PRODUCT USED FOR UNKNOWN INDICATION
     Dosage: 200 MG, BID
     Route: 064
     Dates: start: 20081006

REACTIONS (2)
  - MATERNAL EXPOSURE DURING PREGNANCY [None]
  - PIERRE ROBIN SYNDROME [None]
